FAERS Safety Report 23985645 (Version 1)
Quarter: 2024Q2

REPORT INFORMATION
  Report Type: Spontaneous
  Country: US (occurrence: US)
  Receive Date: 20240618
  Receipt Date: 20240618
  Transmission Date: 20240716
  Serious: Yes (Death, Other)
  Sender: FDA-Public Use
  Company Number: US-AMGEN-USASP2024116009

PATIENT
  Age: 67 Year
  Sex: Male

DRUGS (8)
  1. PREDNISONE [Suspect]
     Active Substance: PREDNISONE
     Indication: Product used for unknown indication
     Dosage: UNK UNK, QD
     Route: 065
  2. AMIFAMPRIDINE [Concomitant]
     Active Substance: AMIFAMPRIDINE
     Dosage: 100 MILLIGRAM
     Route: 065
  3. ACETAMINOPHEN [Concomitant]
     Active Substance: ACETAMINOPHEN
     Dosage: 24.5 GRAM
     Route: 065
  4. PYRIDOSTIGMINE [Concomitant]
     Active Substance: PYRIDOSTIGMINE
     Dosage: UNK UNK, QD
     Route: 065
  5. SERTRALINE [Concomitant]
     Active Substance: SERTRALINE HYDROCHLORIDE
     Dosage: UNK UNK, QD
     Route: 065
  6. TRAZODONE [Concomitant]
     Active Substance: TRAZODONE HYDROCHLORIDE
     Dosage: UNK UNK, QD
     Route: 065
  7. SODIUM CHLORIDE [Concomitant]
     Active Substance: SODIUM CHLORIDE
     Dosage: UNK, 3 LITRE PER KILOGRAM
     Route: 042
  8. ATIVAN [Concomitant]
     Active Substance: LORAZEPAM
     Dosage: 4 MILLIGRAM
     Route: 042

REACTIONS (12)
  - Death [Fatal]
  - New onset refractory status epilepticus [Unknown]
  - Suicide attempt [Unknown]
  - Myasthenic syndrome [Unknown]
  - Cardiac arrest [Unknown]
  - Tachycardia [Unknown]
  - Hypertension [Unknown]
  - Hyperhidrosis [Unknown]
  - Tachypnoea [Unknown]
  - Tremor [Unknown]
  - Blood lactic acid increased [Unknown]
  - Blood potassium increased [Unknown]
